FAERS Safety Report 18889354 (Version 10)
Quarter: 2025Q1

REPORT INFORMATION
  Report Type: Report from Study
  Country: BE (occurrence: BE)
  Receive Date: 20210213
  Receipt Date: 20250304
  Transmission Date: 20250408
  Serious: Yes (Death, Hospitalization, Other)
  Sender: TAKEDA
  Company Number: BE-TAKEDA-BE202007717

PATIENT
  Age: 28 Year
  Sex: Male

DRUGS (11)
  1. IDURSULFASE [Suspect]
     Active Substance: IDURSULFASE
     Indication: Mucopolysaccharidosis II
     Dosage: UNK UNK, 1/WEEK
     Dates: start: 20151110
  2. IDURSULFASE [Suspect]
     Active Substance: IDURSULFASE
  3. IDURSULFASE [Suspect]
     Active Substance: IDURSULFASE
  4. IDURSULFASE [Suspect]
     Active Substance: IDURSULFASE
  5. IDURSULFASE [Suspect]
     Active Substance: IDURSULFASE
     Dosage: UNK UNK, 1/WEEK
  6. IDURSULFASE [Suspect]
     Active Substance: IDURSULFASE
     Dosage: UNK UNK, 1/WEEK
  7. IDURSULFASE [Suspect]
     Active Substance: IDURSULFASE
     Dosage: UNK UNK, 1/WEEK
  8. IDURSULFASE [Suspect]
     Active Substance: IDURSULFASE
     Dosage: UNK UNK, 1/WEEK
  9. IDURSULFASE [Suspect]
     Active Substance: IDURSULFASE
     Dosage: UNK UNK, 1/WEEK
  10. IDURSULFASE [Suspect]
     Active Substance: IDURSULFASE
  11. IDURSULFASE [Suspect]
     Active Substance: IDURSULFASE

REACTIONS (11)
  - Fall [Fatal]
  - Cerebral haemorrhage [Fatal]
  - Epilepsy [Recovered/Resolved]
  - Influenza [Unknown]
  - Bronchiolitis [Recovering/Resolving]
  - Pneumonia [Unknown]
  - Tooth abscess [Recovered/Resolved]
  - Product administration error [Recovered/Resolved]
  - Respiratory tract infection [Recovering/Resolving]
  - Pyrexia [Not Recovered/Not Resolved]
  - Headache [Not Recovered/Not Resolved]

NARRATIVE: CASE EVENT DATE: 20200225
